FAERS Safety Report 5508784-6 (Version None)
Quarter: 2007Q4

REPORT INFORMATION
  Report Type: 
  Country: None (occurrence: None)
  Receive Date: 20071107
  Receipt Date: 20071102
  Transmission Date: 20080405
  Serious: Yes (Life-Threatening)
  Sender: FDA-Public Use
  Company Number: B0493724A

PATIENT
  Age: 7 Year
  Sex: Male

DRUGS (1)
  1. ALKERAN [Suspect]
     Indication: PREMEDICATION
     Route: 042

REACTIONS (1)
  - RESPIRATORY FAILURE [None]
